FAERS Safety Report 14418361 (Version 1)
Quarter: 2018Q1

REPORT INFORMATION
  Report Type: Spontaneous
  Country: PK (occurrence: PK)
  Receive Date: 20180122
  Receipt Date: 20180122
  Transmission Date: 20180509
  Serious: Yes (Hospitalization, Other)
  Sender: FDA-Public Use
  Company Number: PK-TELIGENT, INC-IGIL20180029

PATIENT
  Age: 27 Year
  Sex: Female

DRUGS (3)
  1. METOCLOPRAMIDE. [Concomitant]
     Active Substance: METOCLOPRAMIDE
     Indication: PROPHYLAXIS
     Dosage: 10 MG
     Route: 042
  2. SODIUM CITRATE. [Concomitant]
     Active Substance: SODIUM CITRATE
     Indication: PROPHYLAXIS
     Dosage: 30 ML
     Route: 065
  3. RANITIDINE HYDROCHLORIDE. [Suspect]
     Active Substance: RANITIDINE HYDROCHLORIDE
     Indication: PROPHYLAXIS
     Dosage: 150 MG
     Route: 042

REACTIONS (9)
  - Loss of consciousness [Recovered/Resolved]
  - Breath sounds abnormal [Recovered/Resolved]
  - Anaphylactic reaction [Recovered/Resolved]
  - Cyanosis [Recovered/Resolved]
  - Tachycardia [Recovered/Resolved]
  - Hypotension [Recovered/Resolved]
  - Lactic acidosis [Recovered/Resolved]
  - Dyspnoea [Recovered/Resolved]
  - Metabolic acidosis [Recovered/Resolved]
